FAERS Safety Report 7370596-9 (Version None)
Quarter: 2011Q1

REPORT INFORMATION
  Report Type: 
  Country: None (occurrence: None)
  Receive Date: 20110323
  Receipt Date: 20110316
  Transmission Date: 20110831
  Serious: Yes (Other)
  Sender: FDA-Public Use
  Company Number: US-US-EMD SERONO, INC.-7048688

PATIENT
  Sex: Female

DRUGS (1)
  1. REBIF [Suspect]
     Indication: PRODUCT USED FOR UNKNOWN INDICATION
     Route: 058
     Dates: start: 20020627

REACTIONS (4)
  - SUICIDAL BEHAVIOUR [None]
  - SELF-INJURIOUS IDEATION [None]
  - EMOTIONAL DISTRESS [None]
  - DEPRESSED MOOD [None]
